FAERS Safety Report 12383222 (Version 2)
Quarter: 2016Q2

REPORT INFORMATION
  Report Type: Spontaneous
  Country: US (occurrence: US)
  Receive Date: 20160518
  Receipt Date: 20160620
  Transmission Date: 20160815
  Serious: No
  Sender: FDA-Public Use
  Company Number: US-PFIZER INC-2016264399

PATIENT
  Age: 43 Year
  Sex: Female
  Weight: 72.94 kg

DRUGS (2)
  1. IBRANCE [Suspect]
     Active Substance: PALBOCICLIB
     Indication: BREAST CANCER STAGE IV
     Dosage: 125 MG, CYCLIC (FOR 21 DAYS)
     Route: 048
     Dates: start: 20160414, end: 20160507
  2. ARIMIDEX [Concomitant]
     Active Substance: ANASTROZOLE
     Indication: BREAST CANCER STAGE IV
     Dosage: 1 MG, DAILY
     Route: 048
     Dates: start: 20160331

REACTIONS (2)
  - White blood cell count decreased [Unknown]
  - Neutrophil count decreased [Recovering/Resolving]

NARRATIVE: CASE EVENT DATE: 20160506
